FAERS Safety Report 8609199-4 (Version None)
Quarter: 2012Q3

REPORT INFORMATION
  Report Type: 
  Country: None (occurrence: None)
  Receive Date: 20120821
  Receipt Date: 20120717
  Transmission Date: 20120928
  Serious: Yes (Hospitalization)
  Sender: FDA-Public Use
  Company Number: AT-009507513-1207AUT001218

PATIENT

DRUGS (5)
  1. VORINOSTAT [Suspect]
     Indication: NON-HODGKIN'S LYMPHOMA
     Dosage: 400 MG, QD
     Route: 048
     Dates: start: 20120525, end: 20120630
  2. SUCRALFATE [Concomitant]
     Dosage: 2 G, QD
     Dates: start: 20120627, end: 20120701
  3. MK-0125 [Suspect]
     Indication: NON-HODGKIN'S LYMPHOMA
     Dosage: 40 MG, QW
     Route: 048
     Dates: start: 20120525, end: 20120629
  4. AZACITIDINE [Suspect]
     Indication: NON-HODGKIN'S LYMPHOMA
     Dosage: 5 MG, QD
     Route: 048
     Dates: start: 20120525, end: 20120630
  5. PANTOPRAZOLE SODIUM [Concomitant]
     Dosage: 80 MG, QD
     Dates: start: 20120627, end: 20120701

REACTIONS (1)
  - HERPES ZOSTER [None]
